FAERS Safety Report 9051515 (Version 1)
Quarter: 2013Q1

REPORT INFORMATION
  Report Type: Spontaneous
  Country: US (occurrence: US)
  Receive Date: 20130207
  Receipt Date: 20130207
  Transmission Date: 20140127
  Serious: No
  Sender: FDA-Public Use
  Company Number: US-009507513-1302USA001383

PATIENT
  Age: 63 Year
  Sex: Male

DRUGS (3)
  1. ZETIA [Suspect]
     Indication: BLOOD CHOLESTEROL INCREASED
     Dosage: UNK
     Route: 048
     Dates: start: 20130101, end: 20130128
  2. ATENOLOL [Concomitant]
  3. QUINAPRIL HYDROCHLORIDE [Concomitant]

REACTIONS (2)
  - Pain in extremity [Recovering/Resolving]
  - Myopathy [Unknown]
